FAERS Safety Report 16082988 (Version 1)
Quarter: 2019Q1

REPORT INFORMATION
  Report Type: Spontaneous
  Country: US (occurrence: US)
  Receive Date: 20190318
  Receipt Date: 20190318
  Transmission Date: 20190418
  Serious: No
  Sender: FDA-Public Use
  Company Number: US-AUROBINDO-AUR-APL-2018-026451

PATIENT

DRUGS (1)
  1. CEFPROZIL FOR ORAL SUSPENSION USP 250 MG/5 ML [Suspect]
     Active Substance: CEFPROZIL
     Indication: PRODUCT USED FOR UNKNOWN INDICATION
     Dosage: UNK
     Route: 065

REACTIONS (2)
  - No adverse event [None]
  - Product storage error [Unknown]
